FAERS Safety Report 15714639 (Version 3)
Quarter: 2022Q2

REPORT INFORMATION
  Report Type: Report from Study
  Country: IN (occurrence: IN)
  Receive Date: 20181212
  Receipt Date: 20220414
  Transmission Date: 20220721
  Serious: Yes (Hospitalization, Other)
  Sender: FDA-Public Use
  Company Number: IN-JNJFOC-20181103336

PATIENT
  Age: 33 Year
  Sex: Female
  Weight: 24.2 kg

DRUGS (23)
  1. BEDAQUILINE [Suspect]
     Active Substance: BEDAQUILINE
     Indication: Tuberculosis
     Route: 048
     Dates: start: 20180910, end: 20180923
  2. BEDAQUILINE [Suspect]
     Active Substance: BEDAQUILINE
     Route: 048
     Dates: start: 20180924, end: 20181022
  3. BEDAQUILINE [Suspect]
     Active Substance: BEDAQUILINE
     Route: 048
     Dates: start: 201811, end: 20181129
  4. DELAMANID [Suspect]
     Active Substance: DELAMANID
     Indication: Tuberculosis
     Route: 048
     Dates: start: 20180910, end: 20181022
  5. DELAMANID [Suspect]
     Active Substance: DELAMANID
     Route: 048
     Dates: start: 201811, end: 20181129
  6. IMIPENEM [Suspect]
     Active Substance: IMIPENEM
     Indication: Tuberculosis
     Route: 042
     Dates: start: 20180910, end: 20181022
  7. IMIPENEM [Suspect]
     Active Substance: IMIPENEM
     Route: 042
     Dates: start: 201811, end: 20181129
  8. PYRAZINAMIDE [Suspect]
     Active Substance: PYRAZINAMIDE
     Indication: Tuberculosis
     Route: 065
     Dates: start: 20180910, end: 20181022
  9. PYRAZINAMIDE [Suspect]
     Active Substance: PYRAZINAMIDE
     Route: 065
     Dates: start: 201811, end: 20181129
  10. AMOXICILLIN\CLAVULANIC ACID [Suspect]
     Active Substance: AMOXICILLIN\CLAVULANIC ACID
     Indication: Tuberculosis
     Route: 065
     Dates: start: 20180910, end: 20181022
  11. AMOXICILLIN\CLAVULANIC ACID [Suspect]
     Active Substance: AMOXICILLIN\CLAVULANIC ACID
     Route: 065
     Dates: start: 201811, end: 20181129
  12. MOXIFLOXACIN [Suspect]
     Active Substance: MOXIFLOXACIN
     Indication: Tuberculosis
     Route: 065
     Dates: start: 20180910, end: 201809
  13. MOXIFLOXACIN [Suspect]
     Active Substance: MOXIFLOXACIN
     Route: 065
     Dates: start: 20180927, end: 20181105
  14. CLOFAZIMINE [Suspect]
     Active Substance: CLOFAZIMINE
     Indication: Tuberculosis
     Route: 065
     Dates: start: 20180910, end: 201809
  15. CLOFAZIMINE [Suspect]
     Active Substance: CLOFAZIMINE
     Route: 065
     Dates: start: 20180927, end: 20181022
  16. CLOFAZIMINE [Suspect]
     Active Substance: CLOFAZIMINE
     Route: 065
     Dates: start: 201811, end: 20181129
  17. LINEZOLID [Suspect]
     Active Substance: LINEZOLID
     Indication: Tuberculosis
     Route: 065
     Dates: start: 20181210
  18. OMEPRAZOLE [Concomitant]
     Active Substance: OMEPRAZOLE
     Route: 048
     Dates: start: 20180910
  19. METOCLOPRAMIDE [Concomitant]
     Active Substance: METOCLOPRAMIDE
     Indication: Antiemetic supportive care
     Route: 048
     Dates: start: 20180910
  20. PYRIDOXINE [Concomitant]
     Active Substance: PYRIDOXINE
     Indication: Prophylaxis
     Route: 048
     Dates: start: 20180910
  21. FLUDROCORTISONE [Concomitant]
     Active Substance: FLUDROCORTISONE
     Indication: Blood pressure increased
     Route: 065
  22. FERROUS SULFATE\FOLIC ACID [Concomitant]
     Active Substance: FERROUS SULFATE\FOLIC ACID
     Indication: Haemoglobin decreased
     Route: 048
     Dates: start: 20180910
  23. MIRTAZAPINE [Concomitant]
     Active Substance: MIRTAZAPINE
     Indication: Mixed anxiety and depressive disorder
     Route: 048
     Dates: start: 20181008

REACTIONS (13)
  - Electrocardiogram QT prolonged [Not Recovered/Not Resolved]
  - White blood cell count increased [Recovered/Resolved]
  - Extrasystoles [Unknown]
  - Ventricular extrasystoles [Unknown]
  - Pulmonary mass [Unknown]
  - Pulmonary arterial hypertension [Unknown]
  - Electrocardiogram T wave inversion [Unknown]
  - Hypomagnesaemia [Not Recovered/Not Resolved]
  - Blood potassium decreased [Not Recovered/Not Resolved]
  - Lymphocyte count decreased [Unknown]
  - Drug intolerance [Unknown]
  - Incorrect dose administered [Unknown]
  - Off label use [Unknown]

NARRATIVE: CASE EVENT DATE: 20180924
